FAERS Safety Report 8540343 (Version 5)
Quarter: 2015Q2

REPORT INFORMATION
  Report Type: Report from Study
  Country: CH (occurrence: CH)
  Receive Date: 20120502
  Receipt Date: 20150529
  Transmission Date: 20150821
  Serious: Yes (Death, Hospitalization)
  Sender: FDA-Public Use
  Company Number: PHHO2012CH006585

PATIENT
  Age: 75 Year
  Sex: Male
  Weight: 75.5 kg

DRUGS (16)
  1. ALLOPURINOL. [Concomitant]
     Active Substance: ALLOPURINOL
     Indication: GOUT
     Dosage: 150 MG, DAILY
     Route: 065
     Dates: start: 20090804, end: 20120422
  2. LAXOBERON [Concomitant]
     Active Substance: SODIUM PICOSULFATE
     Dosage: 10 GTT, DAILY
     Route: 065
     Dates: start: 20120604
  3. ENALAPRIL [Suspect]
     Active Substance: ENALAPRIL
     Indication: CARDIAC FAILURE
     Dosage: UNK
     Route: 048
     Dates: start: 20110316, end: 20120425
  4. MARCOUMAR [Concomitant]
     Active Substance: PHENPROCOUMON
     Indication: ATRIAL FIBRILLATION
     Dosage: 3 MG, UNK
     Route: 065
     Dates: start: 20080222, end: 20120422
  5. ALLOPURINOL. [Concomitant]
     Active Substance: ALLOPURINOL
     Dosage: 150 MG, DAILY
     Route: 065
     Dates: start: 20120422
  6. CORDARONE [Concomitant]
     Active Substance: AMIODARONE HYDROCHLORIDE
     Indication: CARDIAC FAILURE
     Dosage: 100 MG, DAILY
     Route: 065
     Dates: start: 20120201, end: 20120422
  7. LAXOBERON [Concomitant]
     Active Substance: SODIUM PICOSULFATE
     Indication: CONSTIPATION
     Dosage: 10 GTT, DAILY
     Route: 065
     Dates: start: 20111102, end: 20120422
  8. ALISKIREN [Suspect]
     Active Substance: ALISKIREN
     Indication: CARDIAC FAILURE
     Dosage: UNK
     Route: 048
     Dates: start: 20110316, end: 20120425
  9. ASPIRIN CARDIO [Concomitant]
     Active Substance: ASPIRIN
     Indication: CORONARY ARTERY DISEASE
     Dosage: 100 MG, DAILY
     Route: 065
     Dates: start: 20010222, end: 20120422
  10. MARCOUMAR [Concomitant]
     Active Substance: PHENPROCOUMON
     Dosage: 3 MG, UNK
     Route: 065
     Dates: start: 20120522
  11. SORTIS [Concomitant]
     Active Substance: ATORVASTATIN
     Indication: CORONARY ARTERY DISEASE
     Dosage: 40 MG, DAILY
     Route: 065
     Dates: start: 20080222, end: 20120422
  12. TORASEMIDE [Concomitant]
     Active Substance: TORSEMIDE
     Dosage: 30 MG, DAILY
     Route: 065
     Dates: start: 20120526
  13. SORTIS [Concomitant]
     Active Substance: ATORVASTATIN
     Dosage: 40 MG, UNK
     Route: 065
     Dates: start: 20120522
  14. CORDARONE [Concomitant]
     Active Substance: AMIODARONE HYDROCHLORIDE
     Dosage: 100 MG, DAILY
     Route: 065
     Dates: start: 20120522
  15. ASPIRIN CARDIO [Concomitant]
     Active Substance: ASPIRIN
     Dosage: 100 MG, DAILY
     Route: 065
     Dates: start: 20120522
  16. TORASEMIDE [Concomitant]
     Active Substance: TORSEMIDE
     Indication: CARDIAC FAILURE
     Dosage: 30 MG, DAILY
     Route: 065
     Dates: start: 20080222, end: 20120422

REACTIONS (2)
  - Right ventricular failure [Fatal]
  - Renal failure [Fatal]

NARRATIVE: CASE EVENT DATE: 20120422
